FAERS Safety Report 19443929 (Version 2)
Quarter: 2022Q1

REPORT INFORMATION
  Report Type: Report from Study
  Country: ES (occurrence: ES)
  Receive Date: 20210621
  Receipt Date: 20220204
  Transmission Date: 20220423
  Serious: Yes (Other)
  Sender: FDA-Public Use
  Company Number: ES-PFM-2019-13764

PATIENT
  Sex: Female
  Weight: 41 kg

DRUGS (39)
  1. BINIMETINIB [Suspect]
     Active Substance: BINIMETINIB
     Indication: Colorectal cancer metastatic
     Dosage: 45 MG, 2X/DAY (ONCE EVERY 12 HOURS)
     Route: 048
     Dates: start: 20190313
  2. ENCORAFENIB [Suspect]
     Active Substance: ENCORAFENIB
     Indication: Colorectal cancer metastatic
     Dosage: 300 MG, 1X/DAY
     Route: 048
     Dates: start: 20190313, end: 20191028
  3. ENCORAFENIB [Suspect]
     Active Substance: ENCORAFENIB
     Dosage: 300 MG, 1X/DAY
     Route: 048
  4. CETUXIMAB [Suspect]
     Active Substance: CETUXIMAB
     Indication: Colorectal cancer metastatic
     Dosage: 500 MG/M2, EVERY 2 WEEKS
     Route: 042
     Dates: start: 20191024
  5. INSULIN NOS [Concomitant]
     Active Substance: INSULIN NOS
     Indication: Hyperglycaemia
     Dosage: UNK, 2X/DAY
     Route: 058
     Dates: start: 20190327
  6. CALCIFEDIOL [Concomitant]
     Active Substance: CALCIFEDIOL
  7. LOPERAMIDE HYDROCHLORIDE [Concomitant]
     Active Substance: LOPERAMIDE HYDROCHLORIDE
     Indication: Diarrhoea
     Dosage: 2 MG, AS NEEDED
     Route: 048
     Dates: start: 20190327
  8. MOMETASONE [Concomitant]
     Active Substance: MOMETASONE
  9. PANTOPRAZOLE [Concomitant]
     Active Substance: PANTOPRAZOLE
     Indication: Prophylaxis
     Dosage: 40 MG, DAILY
     Route: 048
     Dates: start: 20190320
  10. DEXAMETHASONE [Concomitant]
     Active Substance: DEXAMETHASONE
     Indication: Prophylaxis
     Dosage: 4 MG, PER 8H
     Route: 042
     Dates: start: 20190313
  11. ONDANSETRON [Concomitant]
     Active Substance: ONDANSETRON
     Indication: Prophylaxis
     Dosage: 8 MG, CYCLIC
     Route: 042
     Dates: start: 20190313
  12. METAMIZOLE [Concomitant]
     Active Substance: METAMIZOLE
  13. ACETAMINOPHEN [Concomitant]
     Active Substance: ACETAMINOPHEN
  14. SURVIMED OPD [Concomitant]
     Dosage: UNK
     Route: 065
  15. METOCLOPRAMIDE [Concomitant]
     Active Substance: METOCLOPRAMIDE
     Indication: Nausea
     Dosage: 10 MG, 3X/DAY
     Route: 048
     Dates: start: 20190320
  16. ZIVEREL [Concomitant]
     Indication: Reflux gastritis
     Dosage: 10 ML, 3X/DAY
     Route: 048
     Dates: start: 20190320
  17. MICOSTATIN [Concomitant]
     Indication: Mucosal inflammation
     Dosage: 100000 IU/ML PRN
     Route: 048
     Dates: start: 20190322
  18. MOMETASONE FUROATE [Concomitant]
     Active Substance: MOMETASONE FUROATE
     Indication: Dry skin
     Dosage: 45 MG, ONCE EVERY 12 HOURS
     Route: 061
     Dates: start: 20190327
  19. ERYTHROMYCINE [ERYTHROMYCIN LACTOBIONATE] [Concomitant]
     Indication: Dry skin
     Dosage: 20 MG, BID (2/DAY)
     Route: 061
     Dates: start: 20190327
  20. RESINCOLESTIRAMINA [Concomitant]
     Indication: Diarrhoea
     Dosage: 4 G, AS NEEDED
     Route: 048
     Dates: start: 20190404
  21. RESINCOLESTIRAMINA [Concomitant]
     Dosage: 4 G, DAILY
     Route: 048
     Dates: start: 20190404
  22. MAGNESIUM [Concomitant]
     Active Substance: MAGNESIUM
     Indication: Hypomagnesaemia
     Dosage: 97.25 MG, 3X/DAY
     Route: 048
     Dates: start: 20190404
  23. RANITIDINE [Concomitant]
     Active Substance: RANITIDINE
     Indication: Prophylaxis
     Dosage: 50 MG
     Route: 042
     Dates: start: 20190313
  24. DEXCHLORPHENIRAMINE [Concomitant]
     Active Substance: DEXCHLORPHENIRAMINE
     Indication: Prophylaxis
     Dosage: 4 MG
     Route: 042
     Dates: start: 20190313
  25. IRON [Concomitant]
     Active Substance: IRON
     Indication: Iron deficiency anaemia
     Dosage: 20 MG/DL, AS NEEDED
     Route: 042
     Dates: start: 20190718
  26. ENALAPRIL [Concomitant]
     Active Substance: ENALAPRIL
     Indication: Hypertension
     Dosage: 5 MG, DAILY
     Route: 048
  27. INDAPAMIDE [Concomitant]
     Active Substance: INDAPAMIDE
     Indication: Hypertension
     Dosage: 1.25 MG, DAILY
     Route: 048
  28. SIMVASTATIN [Concomitant]
     Active Substance: SIMVASTATIN
     Indication: Dyslipidaemia
     Dosage: 10 MG, DAILY
     Route: 048
  29. METFORMIN [Concomitant]
     Active Substance: METFORMIN HYDROCHLORIDE
     Indication: Type 2 diabetes mellitus
     Dosage: 1000 MG, 2X/DAY
     Route: 048
  30. VILDAGLIPTIN [Concomitant]
     Active Substance: VILDAGLIPTIN
     Indication: Type 2 diabetes mellitus
     Dosage: 50 MG, BID (ONCE EVERY 12 HOURS)
     Route: 048
  31. MORPHINE [Concomitant]
     Active Substance: MORPHINE
     Indication: Tumour pain
     Dosage: 10 MG, AS NEEDED
     Route: 048
     Dates: start: 20190201
  32. GABAPENTIN [Concomitant]
     Active Substance: GABAPENTIN
     Indication: Tumour pain
     Dosage: 100 MG, DAILY
     Route: 048
     Dates: start: 20190225
  33. ONDANSETRON DCI [ONDANSETRON HYDROCHLORIDE] [Concomitant]
     Indication: Nausea
     Dosage: 4 MG, 3X/DAY
     Route: 048
     Dates: start: 20190320, end: 20190411
  34. DEXAMETHASONE [Concomitant]
     Active Substance: DEXAMETHASONE
     Indication: Nausea
     Dosage: 4 MG, 3X/DAY
     Route: 048
     Dates: start: 20190320, end: 20190322
  35. DEXAMETHASONE [Concomitant]
     Active Substance: DEXAMETHASONE
     Dosage: 4 MG, 2X/DAY
     Route: 048
     Dates: start: 20190323, end: 20190325
  36. DEXAMETHASONE [Concomitant]
     Active Substance: DEXAMETHASONE
     Dosage: 4 MG, DAILY
     Route: 048
     Dates: start: 20190326, end: 20190328
  37. DEXAMETHASONE [Concomitant]
     Active Substance: DEXAMETHASONE
     Dosage: 4 MG, DAILY
     Route: 048
     Dates: start: 20190329, end: 20190331
  38. DOXYCYCLINE [Concomitant]
     Active Substance: DOXYCYCLINE
     Indication: Prophylaxis
     Dosage: 100 MG, DAILY
     Dates: start: 20190313, end: 20190322
  39. VENOFER [Concomitant]
     Active Substance: IRON SUCROSE
     Indication: Iron deficiency anaemia
     Dosage: 20 MG, ONCE
     Dates: start: 20190718, end: 20190718

REACTIONS (1)
  - Lymph node tuberculosis [Recovered/Resolved]

NARRATIVE: CASE EVENT DATE: 20191029
